FAERS Safety Report 5610607-1 (Version None)
Quarter: 2008Q1

REPORT INFORMATION
  Report Type: 
  Country: None (occurrence: None)
  Receive Date: 20080131
  Receipt Date: 20080131
  Transmission Date: 20080703
  Serious: Yes (Hospitalization)
  Sender: FDA-Public Use
  Company Number: None

PATIENT
  Age: 47 Year
  Sex: Female
  Weight: 71.6 kg

DRUGS (10)
  1. AVASTIN [Suspect]
     Indication: BREAST CANCER METASTATIC
     Dosage: 10MG/KG 697 MG
     Dates: start: 20071128
  2. AVASTIN [Suspect]
     Indication: BREAST CANCER METASTATIC
     Dosage: 10MG/KG 697 MG
     Dates: start: 20071219
  3. NAVELBINE [Suspect]
     Indication: BREAST CANCER METASTATIC
     Dosage: 25MG/M2 44MG
     Dates: start: 20071128
  4. NAVELBINE [Suspect]
     Indication: BREAST CANCER METASTATIC
     Dosage: 25MG/M2 44MG
     Dates: start: 20071205
  5. NAVELBINE [Suspect]
     Indication: BREAST CANCER METASTATIC
     Dosage: 25MG/M2 44MG
     Dates: start: 20071219
  6. ZYRTEC [Concomitant]
  7. ALPRAZOLAM [Concomitant]
  8. OMEPRAZOLE [Concomitant]
  9. OXYCODONE HCL [Concomitant]
  10. OXYCONTIN [Concomitant]

REACTIONS (8)
  - BACK PAIN [None]
  - EPISTAXIS [None]
  - HEADACHE [None]
  - MALIGNANT NEOPLASM PROGRESSION [None]
  - METASTASES TO KIDNEY [None]
  - METASTASES TO LIVER [None]
  - METASTASES TO LUNG [None]
  - METASTASES TO SPLEEN [None]
